FAERS Safety Report 5232430-2 (Version None)
Quarter: 2007Q1

REPORT INFORMATION
  Report Type: 
  Country: None (occurrence: None)
  Receive Date: 20070205
  Receipt Date: 20070125
  Transmission Date: 20070707
  Serious: Yes (Death, Other)
  Sender: FDA-Public Use
  Company Number: GXKR2007TR01195

PATIENT
  Age: 58 Year
  Sex: Male

DRUGS (8)
  1. AMIODARONE HCL [Suspect]
     Indication: VENTRICULAR TACHYCARDIA
     Dosage: 200 MG, QD
  2. ASPIRIN [Concomitant]
  3. FUROSEMIDE [Concomitant]
  4. DILTIAZEM HYDROCHLORIDE [Concomitant]
  5. ISOSORBIDE DINITRATE [Concomitant]
  6. DIGOXIN [Concomitant]
  7. FAMOTIDINE [Concomitant]
  8. LACTULOSE [Concomitant]

REACTIONS (9)
  - CORNEAL DEPOSITS [None]
  - DRUG TOXICITY [None]
  - GENERAL PHYSICAL HEALTH DETERIORATION [None]
  - HEPATIC CIRRHOSIS [None]
  - HEPATIC ENCEPHALOPATHY [None]
  - HEPATORENAL SYNDROME [None]
  - METABOLIC ACIDOSIS [None]
  - OEDEMA PERIPHERAL [None]
  - SPLENOMEGALY [None]
